FAERS Safety Report 4535908-X (Version None)
Quarter: 2004Q4

REPORT INFORMATION
  Report Type: 
  Country: None (occurrence: None)
  Receive Date: 20041223
  Receipt Date: 20041213
  Transmission Date: 20050328
  Serious: Yes (Hospitalization)
  Sender: FDA-Public Use
  Company Number: US-JNJFOC-20041102845

PATIENT
  Age: 58 Year
  Sex: Female

DRUGS (4)
  1. REMICADE [Suspect]
     Route: 042
  2. REMICADE [Suspect]
     Indication: RHEUMATOID ARTHRITIS
     Route: 042
  3. PREDNISONE [Concomitant]
     Dosage: 5 MG Q AM
     Route: 049
  4. METHOTREXATE [Concomitant]
     Dosage: 8 TABLETS WEEKLY
     Route: 049

REACTIONS (1)
  - HISTOPLASMOSIS DISSEMINATED [None]
